FAERS Safety Report 14351401 (Version 4)
Quarter: 2018Q1

REPORT INFORMATION
  Report Type: Spontaneous
  Country: US (occurrence: US)
  Receive Date: 20180104
  Receipt Date: 20180314
  Transmission Date: 20180509
  Serious: Yes (Other)
  Sender: FDA-Public Use
  Company Number: US-PFIZER INC-2017553442

PATIENT
  Age: 76 Year
  Sex: Female
  Weight: 95 kg

DRUGS (5)
  1. IBRANCE [Suspect]
     Active Substance: PALBOCICLIB
     Indication: BREAST CANCER METASTATIC
     Dosage: 100 MG, CYCLIC (FOR 21 DAYS ON AND 7 DAYS, IN THE EVENING)
     Route: 048
     Dates: start: 2016, end: 20171220
  2. LETROZOLE. [Concomitant]
     Active Substance: LETROZOLE
     Dosage: 25 MG, UNK
     Route: 048
  3. IBRANCE [Suspect]
     Active Substance: PALBOCICLIB
     Dosage: 75 MG, 1X/DAY (IN THE EVENING)
     Route: 048
     Dates: end: 20180205
  4. IBRANCE [Suspect]
     Active Substance: PALBOCICLIB
     Dosage: UNK
     Dates: end: 20180105
  5. LETROZOLE. [Concomitant]
     Active Substance: LETROZOLE
     Indication: BREAST CANCER METASTATIC
     Dosage: 2.5 MG, 1X/DAY (IN THE MORNING)

REACTIONS (8)
  - Asthenia [Unknown]
  - Urinary tract infection [Unknown]
  - Neoplasm progression [Recovered/Resolved]
  - White blood cell count decreased [Unknown]
  - Condition aggravated [Recovering/Resolving]
  - Full blood count decreased [Not Recovered/Not Resolved]
  - Gait disturbance [Recovering/Resolving]
  - Reading disorder [Unknown]

NARRATIVE: CASE EVENT DATE: 2017
